FAERS Safety Report 16601932 (Version 1)
Quarter: 2019Q3

REPORT INFORMATION
  Report Type: Spontaneous
  Country: US (occurrence: US)
  Receive Date: 20190719
  Receipt Date: 20190719
  Transmission Date: 20191004
  Serious: No
  Sender: FDA-Public Use
  Company Number: US-009507513-1907USA011507

PATIENT
  Age: 79 Year
  Sex: Female

DRUGS (11)
  1. OS-CAL + D [Concomitant]
  2. IRBESARTAN. [Concomitant]
     Active Substance: IRBESARTAN
  3. ZETIA [Concomitant]
     Active Substance: EZETIMIBE
     Indication: BLOOD CHOLESTEROL INCREASED
  4. WELCHOL [Concomitant]
     Active Substance: COLESEVELAM HYDROCHLORIDE
     Indication: BLOOD CHOLESTEROL INCREASED
  5. ASMANEX [Suspect]
     Active Substance: MOMETASONE FUROATE
     Indication: INTERSTITIAL LUNG DISEASE
     Dosage: 1 ACTUATION DAILY
     Dates: start: 2017
  6. VITAMINS (UNSPECIFIED) [Concomitant]
     Active Substance: VITAMINS
  7. MECLIZINE [Concomitant]
     Active Substance: MECLIZINE HYDROCHLORIDE
  8. ASPIRIN. [Concomitant]
     Active Substance: ASPIRIN
  9. AMLODIPINE BESYLATE. [Concomitant]
     Active Substance: AMLODIPINE BESYLATE
     Indication: HYPERTENSION
  10. VITAMIN D (UNSPECIFIED) [Concomitant]
     Active Substance: VITAMIN D NOS
     Dosage: 60,000 UNITS, ONCE A WEEK
  11. NATURE MADE FISH OIL OMEGA 3 [Concomitant]

REACTIONS (6)
  - Circumstance or information capable of leading to medication error [Unknown]
  - Product use in unapproved indication [Unknown]
  - Poor quality device used [Unknown]
  - Product quality issue [Unknown]
  - Incorrect dose administered by device [Unknown]
  - No adverse event [Unknown]

NARRATIVE: CASE EVENT DATE: 2017
